FAERS Safety Report 9320396 (Version 1)
Quarter: 2013Q2

REPORT INFORMATION
  Report Type: Spontaneous
  Country: BR (occurrence: BR)
  Receive Date: 20130530
  Receipt Date: 20130530
  Transmission Date: 20140414
  Serious: Yes (Other)
  Sender: FDA-Public Use
  Company Number: BR-B.I. PHARMACEUTICALS,INC./RIDGEFIELD-2013-BR-00632BR

PATIENT
  Age: 12 Year
  Sex: Female
  Weight: 58 kg

DRUGS (3)
  1. PERSANTIN [Suspect]
     Dosage: 225 MG
     Route: 048
     Dates: start: 20130520, end: 20130520
  2. PREDNISOLONA [Concomitant]
     Dosage: 20 MG
     Route: 048
     Dates: start: 20130520, end: 20130520
  3. NIFEDIPINA [Concomitant]
     Dosage: 100 MG
     Route: 048
     Dates: start: 20130520, end: 20130520

REACTIONS (1)
  - Drug abuse [Unknown]
